FAERS Safety Report 5084069-X (Version None)
Quarter: 2006Q3

REPORT INFORMATION
  Report Type: 
  Country: None (occurrence: None)
  Receive Date: 20060821
  Receipt Date: 20060810
  Transmission Date: 20061208
  Serious: Yes (Hospitalization)
  Sender: FDA-Public Use
  Company Number: BR-JNJFOC-20060705119

PATIENT
  Sex: Female
  Weight: 70 kg

DRUGS (4)
  1. REMICADE [Suspect]
     Route: 042
  2. REMICADE [Suspect]
     Indication: CROHN'S DISEASE
     Route: 042
  3. PURINETOL [Concomitant]
     Route: 048
  4. CONTRACEPTIVE [Concomitant]
     Route: 048

REACTIONS (1)
  - CEREBROVASCULAR DISORDER [None]
